FAERS Safety Report 5109455-0 (Version None)
Quarter: 2006Q3

REPORT INFORMATION
  Report Type: 
  Country: None (occurrence: None)
  Receive Date: 20060918
  Receipt Date: 20060831
  Transmission Date: 20061208
  Serious: Yes (Hospitalization)
  Sender: FDA-Public Use
  Company Number: FR200608006796

PATIENT
  Age: 77 Year
  Sex: Female

DRUGS (4)
  1. FORTEO [Suspect]
     Dosage: 20 UG, DAILY (1/D), SUBCUTANEOUS
     Route: 058
     Dates: start: 20051214
  2. FORTEO [Concomitant]
  3. ESBERIVEN (MELILOT, RUTOSIDE) [Concomitant]
  4. JOUVENCE DE L'ABBE SOURY (CALAMUS OIL, HAMMAMELIS, PISCIDIA EXTRACT,VI [Concomitant]

REACTIONS (2)
  - PHLEBITIS [None]
  - PULMONARY EMBOLISM [None]
